FAERS Safety Report 20160424 (Version 1)
Quarter: 2021Q4

REPORT INFORMATION
  Report Type: Other
  Country: KR (occurrence: None)
  Receive Date: 20211208
  Receipt Date: 20211208
  Transmission Date: 20220303
  Serious: Yes (Death)
  Sender: FDA-Public Use
  Company Number: KR-ROCHE-2972325

PATIENT
  Age: 75 Year
  Sex: Female

DRUGS (2)
  1. CAPECITABINE [Suspect]
     Active Substance: CAPECITABINE
     Indication: Squamous cell carcinoma
     Route: 048
  2. OXALIPLATIN [Suspect]
     Active Substance: OXALIPLATIN
     Indication: Squamous cell carcinoma
     Route: 065

REACTIONS (4)
  - Disease progression [Fatal]
  - Mucosal inflammation [Unknown]
  - Asthenia [Unknown]
  - Drug ineffective [Unknown]
